FAERS Safety Report 24783723 (Version 4)
Quarter: 2025Q1

REPORT INFORMATION
  Report Type: Spontaneous
  Country: US (occurrence: US)
  Receive Date: 20241227
  Receipt Date: 20250221
  Transmission Date: 20250409
  Serious: Yes (Life-Threatening, Hospitalization, Other)
  Sender: PFIZER
  Company Number: US-PFIZER INC-PV202400168234

PATIENT
  Age: 6 Year
  Sex: Female
  Weight: 25.2 kg

DRUGS (11)
  1. ALDACTAZIDE [Suspect]
     Active Substance: HYDROCHLOROTHIAZIDE\SPIRONOLACTONE
     Indication: Hypertension
  2. MAS-825 [Suspect]
     Active Substance: MAS-825
     Indication: Still^s disease
     Route: 042
     Dates: start: 20241030
  3. MAS-825 [Suspect]
     Active Substance: MAS-825
     Indication: Interstitial lung disease
  4. MAS-825 [Suspect]
     Active Substance: MAS-825
     Indication: Pulmonary hypertension
  5. AMLODIPINE [Suspect]
     Active Substance: AMLODIPINE BESYLATE
     Indication: Hypertension
  6. AMLODIPINE [Suspect]
     Active Substance: AMLODIPINE BESYLATE
     Dosage: 5 MG, 2X/DAY
     Dates: start: 20250111, end: 20250115
  7. CLONIDINE [Suspect]
     Active Substance: CLONIDINE
     Indication: Hypertension
  8. ENALAPRIL MALEATE [Suspect]
     Active Substance: ENALAPRIL MALEATE
     Indication: Hypertension
  9. ENALAPRIL MALEATE [Suspect]
     Active Substance: ENALAPRIL MALEATE
     Dosage: 5 MG, 2X/DAY
     Dates: start: 20250114, end: 20250115
  10. TADALAFIL [Suspect]
     Active Substance: TADALAFIL
     Indication: Pulmonary hypertension
  11. CLONIDINE [Suspect]
     Active Substance: CLONIDINE
     Indication: Trichotillomania
     Dates: start: 20241227, end: 20241227

REACTIONS (25)
  - Hypotension [Recovering/Resolving]
  - Acute kidney injury [Recovering/Resolving]
  - Vomiting [Recovering/Resolving]
  - Electrolyte imbalance [Recovering/Resolving]
  - Abdominal pain [Recovering/Resolving]
  - Gastroenteritis viral [Recovering/Resolving]
  - Small intestinal obstruction [Recovered/Resolved]
  - Dehydration [Recovered/Resolved]
  - Gastrointestinal stoma output decreased [Unknown]
  - Hypokalaemia [Recovering/Resolving]
  - Lethargy [Recovering/Resolving]
  - Poor peripheral circulation [Recovering/Resolving]
  - Hypophagia [Recovering/Resolving]
  - Hyponatraemia [Recovering/Resolving]
  - Metabolic acidosis [Recovering/Resolving]
  - Hypoglycaemia [Recovering/Resolving]
  - Fatigue [Recovering/Resolving]
  - Anaemia [Recovering/Resolving]
  - Serum ferritin increased [Recovering/Resolving]
  - Alanine aminotransferase increased [Recovering/Resolving]
  - Red blood cell sedimentation rate increased [Recovering/Resolving]
  - White blood cell count increased [Recovered/Resolved]
  - Neutrophil count increased [Unknown]
  - Blood sodium decreased [Unknown]
  - Hyperferritinaemia [Recovering/Resolving]

NARRATIVE: CASE EVENT DATE: 20241206
